FAERS Safety Report 15869060 (Version 1)
Quarter: 2019Q1

REPORT INFORMATION
  Report Type: Spontaneous
  Country: CN (occurrence: CN)
  Receive Date: 20190125
  Receipt Date: 20190125
  Transmission Date: 20190417
  Serious: Yes (Other)
  Sender: FDA-Public Use
  Company Number: CN-PFIZER INC-2019022236

PATIENT
  Age: 63 Year
  Sex: Male

DRUGS (1)
  1. LYRICA [Suspect]
     Active Substance: PREGABALIN
     Dosage: UNK
     Route: 048

REACTIONS (10)
  - Nausea [Unknown]
  - Renal failure [Unknown]
  - Nephrolithiasis [Unknown]
  - Flatulence [Unknown]
  - Feeling abnormal [Unknown]
  - Suicidal ideation [Unknown]
  - Lacrimation increased [Unknown]
  - Dizziness [Unknown]
  - Liver disorder [Unknown]
  - Renal disorder [Unknown]
